FAERS Safety Report 10189892 (Version 3)
Quarter: 2017Q2

REPORT INFORMATION
  Report Type: Spontaneous
  Country: US (occurrence: US)
  Receive Date: 20140522
  Receipt Date: 20170606
  Transmission Date: 20170829
  Serious: Yes (Other)
  Sender: FDA-Public Use
  Company Number: US-SA-2014SA006727

PATIENT
  Age: 80 Year
  Sex: Female

DRUGS (3)
  1. SOLOSTAR [Concomitant]
     Active Substance: DEVICE
     Dates: start: 2007
  2. LANTUS SOLOSTAR [Suspect]
     Active Substance: INSULIN GLARGINE
     Indication: TYPE 2 DIABETES MELLITUS
     Dosage: DOCTOR INCREASED HER DOSE FROM 30UNITS TO 40UNITS. DOSE:40 UNIT(S)
     Route: 058
     Dates: start: 2007
  3. LANTUS SOLOSTAR [Suspect]
     Active Substance: INSULIN GLARGINE
     Indication: TYPE 2 DIABETES MELLITUS
     Dosage: DOCTOR INCREASED HER DOSE FROM 30UNITS TO 40UNITS. DOSE:40 UNIT(S)
     Route: 058
     Dates: start: 2007

REACTIONS (6)
  - Wrong technique in product usage process [Unknown]
  - Blood glucose increased [Unknown]
  - Cataract [Unknown]
  - Eye operation [Unknown]
  - Drug dose omission [Unknown]
  - Visual impairment [Unknown]

NARRATIVE: CASE EVENT DATE: 2012
